FAERS Safety Report 17737179 (Version 1)
Quarter: 2020Q2

REPORT INFORMATION
  Report Type: Spontaneous
  Country: GB (occurrence: GB)
  Receive Date: 20200502
  Receipt Date: 20200502
  Transmission Date: 20200714
  Serious: Yes (Disabling)
  Sender: FDA-Public Use
  Company Number: GB-TEVA-2020-GB-1229169

PATIENT
  Age: 85 Year
  Sex: Male
  Weight: 69.5 kg

DRUGS (18)
  1. FOLIC ACID. [Concomitant]
     Active Substance: FOLIC ACID
     Dosage: 5 MILLIGRAM DAILY; 5MG
     Dates: start: 20200401
  2. BUMETANIDE. [Concomitant]
     Active Substance: BUMETANIDE
     Dosage: 3 MG
     Dates: start: 20200131
  3. LANSOPRAZOLE. [Concomitant]
     Active Substance: LANSOPRAZOLE
     Dosage: 15 MILLIGRAM DAILY; IN MORNING 15MG
     Dates: start: 20200401
  4. SERETIDE [Concomitant]
     Active Substance: FLUTICASONE PROPIONATE\SALMETEROL XINAFOATE
     Dosage: PUFFS 4 DOSAGE FORMS
     Dates: start: 20200401
  5. METFORMIN [Concomitant]
     Active Substance: METFORMIN HYDROCHLORIDE
     Dosage: IN MORNING, PATIENT PREFERENCE 500 MG
     Dates: start: 20200401
  6. PREDNISOLONE. [Concomitant]
     Active Substance: PREDNISOLONE
     Dosage: 2.5 MILLIGRAM DAILY; IN MORNING 2.5 MG
     Dates: start: 20200401
  7. PREDNISOLONE. [Concomitant]
     Active Substance: PREDNISOLONE
     Dosage: IN MORNING 5 MG
     Dates: start: 20200401
  8. CO-AMOXICLAV [Concomitant]
     Active Substance: AMOXICILLIN\CLAVULANATE POTASSIUM
     Dosage: 500MG/125MG 3 DOSAGE FORMS
     Dates: start: 20200129
  9. CLINDAMYCIN. [Suspect]
     Active Substance: CLINDAMYCIN
     Indication: PERIPHERAL ISCHAEMIA
     Dosage: 150 MG
     Route: 048
  10. BUMETANIDE. [Concomitant]
     Active Substance: BUMETANIDE
     Dosage: 4 MILLIGRAM DAILY; IN MORNING 4 MG
     Dates: start: 20200401
  11. WARFARIN [Concomitant]
     Active Substance: WARFARIN
     Dosage: MDU, AS DIRECTED 1 MG
     Dates: start: 20200211
  12. COCODAMOL [Concomitant]
     Active Substance: ACETAMINOPHEN\CODEINE PHOSPHATE
     Dosage: 30MG/500MG, 1-2, UP TO FOUR TIMES DAILY
     Dates: start: 20200326
  13. APIXABAN [Concomitant]
     Active Substance: APIXABAN
     Dosage: 5MG
     Dates: start: 20200306
  14. RAMIPRIL. [Concomitant]
     Active Substance: RAMIPRIL
     Dosage: 5 MG
     Dates: start: 20200212
  15. FINASTERIDE. [Concomitant]
     Active Substance: FINASTERIDE
     Dosage: IN MORNING 5 MG
     Dates: start: 20200401
  16. TAMSULOSIN [Concomitant]
     Active Substance: TAMSULOSIN
     Dosage: 400 MICROGRAM
     Dates: start: 20200401
  17. FUROSEMIDE. [Concomitant]
     Active Substance: FUROSEMIDE
     Dosage: 20 MILLIGRAM DAILY; IN MORNING 20 MG
     Dates: start: 20200317, end: 20200326
  18. NIFEDIPINE. [Concomitant]
     Active Substance: NIFEDIPINE
     Dosage: 10 MG
     Dates: start: 20200401

REACTIONS (2)
  - Pain in extremity [Recovered/Resolved]
  - Myalgia [Recovered/Resolved]

NARRATIVE: CASE EVENT DATE: 20200411
